FAERS Safety Report 12400281 (Version 1)
Quarter: 2016Q2

REPORT INFORMATION
  Report Type: Spontaneous
  Country: US (occurrence: None)
  Receive Date: 20160524
  Receipt Date: 20160524
  Transmission Date: 20160815
  Serious: No
  Sender: FDA-Public Use
  Company Number: None

PATIENT
  Age: 73 Year
  Sex: Female
  Weight: 58.97 kg

DRUGS (9)
  1. THYROID [Concomitant]
     Active Substance: LEVOTHYROXINE\LIOTHYRONINE
  2. COQ10 [Concomitant]
     Active Substance: UBIDECARENONE
  3. PROBIOTICS [Concomitant]
     Active Substance: PROBIOTICS NOS
  4. HORMONES [Concomitant]
     Active Substance: UNSPECIFIED INGREDIENT
  5. VITAMIN D [Concomitant]
     Active Substance: CHOLECALCIFEROL
  6. CALCIUM [Concomitant]
     Active Substance: CALCIUM
  7. MULTIVITAMIN [Concomitant]
     Active Substance: VITAMINS
  8. PROLIA [Suspect]
     Active Substance: DENOSUMAB
     Indication: OSTEOPENIA
     Dosage: 6 MONTHS INJECTION BY DOCTOR
     Dates: start: 20160310
  9. ASACOL [Concomitant]
     Active Substance: MESALAMINE

REACTIONS (2)
  - Gingival recession [None]
  - Tooth disorder [None]

NARRATIVE: CASE EVENT DATE: 20160404
